FAERS Safety Report 5075915-4 (Version None)
Quarter: 2006Q3

REPORT INFORMATION
  Report Type: 
  Country: None (occurrence: None)
  Receive Date: 20060808
  Receipt Date: 20060808
  Transmission Date: 20061208
  Serious: Yes (Death)
  Sender: FDA-Public Use
  Company Number: None

PATIENT
  Age: 18 Year
  Sex: Male
  Weight: 49.4 kg

DRUGS (15)
  1. CLOFARABINE 20 MG VIALS GENZYME [Suspect]
     Indication: ACUTE LYMPHOCYTIC LEUKAEMIA
     Dosage: 70 MG DAILY IV
     Route: 042
     Dates: start: 20060729, end: 20060802
  2. CLOFARABINE 20 MG VIALS GENZYME [Suspect]
     Indication: LEUKAEMIA RECURRENT
     Dosage: 70 MG DAILY IV
     Route: 042
     Dates: start: 20060729, end: 20060802
  3. ETHOSUXIMIDE [Concomitant]
  4. SENNA [Concomitant]
  5. CEFEPIME [Concomitant]
  6. ACYCLOVIR [Concomitant]
  7. ABELCET [Concomitant]
  8. METRONIDAZOLE [Concomitant]
  9. LANSOPRAZOLE [Concomitant]
  10. GRANISETRON  HCL [Concomitant]
  11. DEXTROSE 5% [Concomitant]
  12. NS [Concomitant]
  13. NA BICARB [Concomitant]
  14. CA CLUCONATE [Concomitant]
  15. MG SULFATE [Concomitant]

REACTIONS (9)
  - CARDIAC ARREST [None]
  - DEPRESSED LEVEL OF CONSCIOUSNESS [None]
  - HYPOTENSION [None]
  - MENTAL STATUS CHANGES [None]
  - NASAL FLARING [None]
  - OXYGEN SATURATION DECREASED [None]
  - RESPIRATORY ARREST [None]
  - RESPIRATORY DISTRESS [None]
  - TACHYCARDIA [None]
